FAERS Safety Report 19454239 (Version 3)
Quarter: 2021Q3

REPORT INFORMATION
  Report Type: Spontaneous
  Country: DK (occurrence: DK)
  Receive Date: 20210623
  Receipt Date: 20210726
  Transmission Date: 20211014
  Serious: Yes (Death, Life-Threatening, Hospitalization)
  Sender: FDA-Public Use
  Company Number: DK-SAMSUNG BIOEPIS-SB-2021-15290

PATIENT
  Age: 74 Year
  Sex: Female
  Weight: 87 kg

DRUGS (7)
  1. FOLIMET [Concomitant]
     Active Substance: FOLIC ACID
     Indication: RHEUMATOID ARTHRITIS
     Dosage: UNKNOWN
     Route: 065
     Dates: start: 2005, end: 2021
  2. METHOTREXATE PARANOVA [Concomitant]
     Indication: RHEUMATOID ARTHRITIS
     Dosage: UNKNOWN
     Route: 065
     Dates: start: 2005, end: 2021
  3. LITAREX [Concomitant]
     Indication: DEPRESSION
     Dosage: UNKNOWN
     Route: 065
     Dates: start: 2019, end: 2021
  4. IMRALDI [Suspect]
     Active Substance: ADALIMUMAB
     Indication: RHEUMATOID ARTHRITIS
     Route: 065
     Dates: start: 20201028, end: 20210422
  5. COMIRNATY [Suspect]
     Active Substance: TOZINAMERAN
     Indication: COVID-19 IMMUNISATION
     Route: 065
     Dates: start: 20210304, end: 20210326
  6. ANAFRANIL [Concomitant]
     Active Substance: CLOMIPRAMINE HYDROCHLORIDE
     Indication: DEPRESSION
     Dosage: UNKNOWN
     Route: 065
     Dates: start: 1988, end: 2021
  7. TRUXAL [Concomitant]
     Active Substance: CHLORPROTHIXENE
     Indication: DEPRESSION
     Dosage: UNKNOWN
     Route: 065
     Dates: start: 1988, end: 2021

REACTIONS (13)
  - Sepsis [Fatal]
  - Cyanosis [Unknown]
  - Muscular weakness [Not Recovered/Not Resolved]
  - Renal failure [Fatal]
  - Pneumocystis jirovecii pneumonia [Fatal]
  - Tremor [Not Recovered/Not Resolved]
  - Confusional state [Not Recovered/Not Resolved]
  - Dizziness [Not Recovered/Not Resolved]
  - Heart rate irregular [Not Recovered/Not Resolved]
  - Circulatory collapse [Fatal]
  - Dyspnoea [Not Recovered/Not Resolved]
  - Septic shock [Fatal]
  - Respiratory failure [Not Recovered/Not Resolved]

NARRATIVE: CASE EVENT DATE: 202105
